FAERS Safety Report 5946841-0 (Version None)
Quarter: 2008Q4

REPORT INFORMATION
  Report Type: 
  Country: None (occurrence: None)
  Receive Date: 20081021
  Receipt Date: 20071121
  Transmission Date: 20090506
  Serious: Yes (Other)
  Sender: FDA-Public Use
  Company Number: US-WYE-H01392507

PATIENT
  Age: 51 Year
  Sex: Female

DRUGS (1)
  1. PREMARIN [Suspect]
     Indication: OESTROGEN REPLACEMENT THERAPY
     Dosage: 1.25 MG 3X PER 1 WK
     Dates: end: 19760301

REACTIONS (1)
  - ENDOMETRIAL CANCER [None]
